FAERS Safety Report 5135113-2 (Version None)
Quarter: 2006Q4

REPORT INFORMATION
  Report Type: 
  Country: None (occurrence: None)
  Receive Date: 20060831
  Receipt Date: 20060519
  Transmission Date: 20070319
  Serious: No
  Sender: FDA-Public Use
  Company Number: 2006-BP-05669BP

PATIENT
  Sex: Male

DRUGS (7)
  1. SPIRIVA [Suspect]
     Indication: CHRONIC OBSTRUCTIVE PULMONARY DISEASE
     Dosage: 18 MCG (18 MCG,1 IN 1 D),IH
     Route: 055
     Dates: start: 20060518
  2. SPIRIVA [Suspect]
  3. GLIPIZIDE [Concomitant]
  4. ENALAPRIL MALEATE [Concomitant]
  5. LIPITOR [Concomitant]
  6. ASA BABY [Concomitant]
  7. VITAMINS [Concomitant]

REACTIONS (5)
  - AGEUSIA [None]
  - DIARRHOEA [None]
  - DRUG INEFFECTIVE [None]
  - DYSGEUSIA [None]
  - DYSPNOEA [None]
